FAERS Safety Report 8375666-4 (Version None)
Quarter: 2012Q2

REPORT INFORMATION
  Report Type: 
  Country: None (occurrence: None)
  Receive Date: 20120522
  Receipt Date: 20120516
  Transmission Date: 20120825
  Serious: No
  Sender: FDA-Public Use
  Company Number: US-PFIZER INC-2012079520

PATIENT
  Sex: Male
  Weight: 36 kg

DRUGS (4)
  1. GENOTROPIN [Suspect]
     Dosage: 1.6 MG, 1X/DAY
  2. GENOTROPIN [Suspect]
     Dosage: 1.7 MG, DAILY X 7 SUBCUTANEOUS
     Route: 058
  3. FLOVENT [Concomitant]
     Dosage: 44UG/INH AEROSOL WITH ADAPTER 2 PUFF(S) 2 TIMES A DAY
  4. GENOTROPIN [Suspect]
     Indication: GROWTH HORMONE DEFICIENCY
     Dosage: 1.8 MG, DAILY
     Dates: start: 20110101

REACTIONS (2)
  - CIRCUMSTANCE OR INFORMATION CAPABLE OF LEADING TO MEDICATION ERROR [None]
  - POLYURIA [None]
